FAERS Safety Report 12306434 (Version 4)
Quarter: 2016Q2

REPORT INFORMATION
  Report Type: Spontaneous
  Country: US (occurrence: US)
  Receive Date: 20160426
  Receipt Date: 20160510
  Transmission Date: 20160815
  Serious: Yes (Hospitalization, Other)
  Sender: FDA-Public Use
  Company Number: US-CELGENEUS-USA-2016046019

PATIENT
  Age: 26 Year
  Sex: Female

DRUGS (3)
  1. OTEZLA [Suspect]
     Active Substance: APREMILAST
     Indication: PSORIASIS
     Dosage: 60 MILLIGRAM
     Route: 048
     Dates: start: 20160413
  2. LEVAQUIN [Concomitant]
     Active Substance: LEVOFLOXACIN
     Indication: INFECTION PROPHYLAXIS
     Route: 065
     Dates: start: 20160419, end: 20160421
  3. PHENERGAN [Concomitant]
     Active Substance: PROMETHAZINE HYDROCHLORIDE
     Indication: VOMITING
     Route: 065
     Dates: start: 20160421

REACTIONS (9)
  - Fear [Unknown]
  - Vomiting [Unknown]
  - Bacterial infection [Unknown]
  - Panic reaction [Unknown]
  - Diarrhoea [Unknown]
  - Delirium [Unknown]
  - Chest pain [Unknown]
  - Pain [Unknown]
  - Lung disorder [Unknown]

NARRATIVE: CASE EVENT DATE: 20160418
